FAERS Safety Report 9394810 (Version 1)
Quarter: 2013Q3

REPORT INFORMATION
  Report Type: Spontaneous
  Country: US (occurrence: US)
  Receive Date: 20130711
  Receipt Date: 20130711
  Transmission Date: 20140515
  Serious: Yes (Other)
  Sender: FDA-Public Use
  Company Number: US-JNJFOC-20130703305

PATIENT
  Sex: Female
  Weight: 54.43 kg

DRUGS (3)
  1. DURAGESIC [Suspect]
     Indication: PAIN
     Route: 062
  2. DURAGESIC [Suspect]
     Indication: PAIN
     Route: 062
     Dates: start: 1989
  3. NEURONTIN [Concomitant]
     Indication: PAIN
     Dosage: 3 TIMES DAILY AS NEEDED
     Route: 048

REACTIONS (2)
  - Complex regional pain syndrome [Not Recovered/Not Resolved]
  - Product quality issue [Unknown]
